FAERS Safety Report 8971452 (Version 5)
Quarter: 2013Q3

REPORT INFORMATION
  Report Type: Spontaneous
  Country: JP (occurrence: JP)
  Receive Date: 20121217
  Receipt Date: 20130705
  Transmission Date: 20140515
  Serious: Yes (Other)
  Sender: FDA-Public Use
  Company Number: JP-GILEAD-2012-0066190

PATIENT
  Age: 62 Year
  Sex: Male

DRUGS (4)
  1. HEPSERA [Suspect]
     Indication: CHRONIC HEPATITIS B
     Dosage: 10MG PER DAY
     Route: 048
     Dates: start: 200901, end: 201208
  2. HEPSERA [Suspect]
     Indication: PATHOGEN RESISTANCE
     Dosage: 10MG ALTERNATE DAYS
     Route: 048
     Dates: start: 201208, end: 201209
  3. ZEFIX [Concomitant]
     Indication: CHRONIC HEPATITIS B
     Dosage: 100MG PER DAY
     Route: 048
     Dates: start: 200412, end: 201209
  4. INTERFERON [Concomitant]
     Indication: PRODUCT USED FOR UNKNOWN INDICATION
     Dosage: UNK, Q1WK

REACTIONS (9)
  - Renal disorder [Unknown]
  - Diabetic nephropathy [Unknown]
  - Fanconi syndrome acquired [Not Recovered/Not Resolved]
  - Hypophosphataemia [Unknown]
  - Arthralgia [Unknown]
  - Gait disturbance [Recovering/Resolving]
  - Multiple fractures [Unknown]
  - Osteomalacia [Unknown]
  - Back pain [Recovering/Resolving]
